FAERS Safety Report 9433019 (Version 1)
Quarter: 2013Q3

REPORT INFORMATION
  Report Type: Spontaneous
  Country: US (occurrence: US)
  Receive Date: 20130731
  Receipt Date: 20130731
  Transmission Date: 20140515
  Serious: Yes (Hospitalization)
  Sender: FDA-Public Use
  Company Number: US-BAYER-2013-091089

PATIENT
  Age: 38 Year
  Sex: Female

DRUGS (4)
  1. YAZ [Suspect]
  2. CYCLOBENZAPRINE [Concomitant]
  3. LEVAQUIN [Concomitant]
  4. EFFEXOR [Concomitant]

REACTIONS (3)
  - Embolic stroke [None]
  - Cerebral infarction [None]
  - Thrombosis [None]
